FAERS Safety Report 5833324-1 (Version None)
Quarter: 2008Q3

REPORT INFORMATION
  Report Type: 
  Country: None (occurrence: None)
  Receive Date: 20080801
  Receipt Date: 20080730
  Transmission Date: 20090109
  Serious: Yes (Hospitalization, Disabling)
  Sender: FDA-Public Use
  Company Number: SP01911

PATIENT
  Age: 63 Year
  Sex: Female
  Weight: 84.369 kg

DRUGS (4)
  1. VISICOL [Suspect]
     Indication: COLONOSCOPY
     Dosage: ORAL
     Route: 048
     Dates: start: 20080417, end: 20080418
  2. DULCOLAX [Concomitant]
  3. PREVACID [Concomitant]
  4. CETIRIZINE(10 MILLIGRAM) [Concomitant]

REACTIONS (18)
  - ANAL PRURITUS [None]
  - ANORECTAL DISCOMFORT [None]
  - ANORECTAL DISORDER [None]
  - DISCOMFORT [None]
  - DRUG INEFFECTIVE [None]
  - DYSURIA [None]
  - ERYTHEMA [None]
  - LIP SWELLING [None]
  - LOCAL SWELLING [None]
  - PARAESTHESIA [None]
  - RASH GENERALISED [None]
  - SKIN DISCOLOURATION [None]
  - SWELLING [None]
  - SWELLING FACE [None]
  - VAGINAL DISORDER [None]
  - VULVOVAGINAL BURNING SENSATION [None]
  - VULVOVAGINAL MYCOTIC INFECTION [None]
  - VULVOVAGINAL PRURITUS [None]
